FAERS Safety Report 5312121-X (Version None)
Quarter: 2007Q2

REPORT INFORMATION
  Report Type: 
  Country: None (occurrence: None)
  Receive Date: 20070430
  Receipt Date: 20060712
  Transmission Date: 20071010
  Serious: No
  Sender: FDA-Public Use
  Company Number: 2006UW14350

PATIENT
  Age: 70 Year
  Sex: Female
  Weight: 65.8 kg

DRUGS (2)
  1. NEXIUM [Suspect]
     Indication: GASTROOESOPHAGEAL REFLUX DISEASE
     Route: 048
     Dates: start: 20060201
  2. PLAVIX [Concomitant]

REACTIONS (5)
  - ALOPECIA [None]
  - BREAST PAIN [None]
  - DYSPEPSIA [None]
  - HEADACHE [None]
  - PAIN IN EXTREMITY [None]
